FAERS Safety Report 23982223 (Version 2)
Quarter: 2024Q2

REPORT INFORMATION
  Report Type: Spontaneous
  Country: US (occurrence: US)
  Receive Date: 20240617
  Receipt Date: 20240627
  Transmission Date: 20240715
  Serious: Yes (Death, Other)
  Sender: FDA-Public Use
  Company Number: US-AMGEN-USASP2024116622

PATIENT
  Age: 65 Year
  Sex: Female

DRUGS (9)
  1. PREDNISONE [Suspect]
     Active Substance: PREDNISONE
     Indication: Tubulointerstitial nephritis
     Dosage: 60 MILLIGRAM, QD
     Route: 065
     Dates: start: 2022
  2. PREDNISONE [Suspect]
     Active Substance: PREDNISONE
     Dosage: UNK, (RESTARTED)
     Route: 065
  3. PREDNISONE [Suspect]
     Active Substance: PREDNISONE
     Dosage: 40 MILLIGRAM, QD
     Route: 065
  4. PREDNISONE [Suspect]
     Active Substance: PREDNISONE
     Dosage: 10 MILLIGRAM, QD, TAPPERED
     Route: 065
     Dates: start: 202301
  5. INFLIXIMAB [Suspect]
     Active Substance: INFLIXIMAB
     Indication: Tubulointerstitial nephritis
     Dosage: 5 MILLIGRAM/KILOGRAM, SINGLE INFUSION
     Route: 065
     Dates: start: 2022
  6. INFLIXIMAB [Suspect]
     Active Substance: INFLIXIMAB
     Dosage: UNK, (RESTARTED), FIVE CYCLES
     Route: 065
  7. CARBOPLATIN [Concomitant]
     Active Substance: CARBOPLATIN
     Indication: Lung adenocarcinoma stage IV
     Dosage: UNK
     Route: 065
  8. PEMETREXED [Concomitant]
     Active Substance: PEMETREXED
     Indication: Lung adenocarcinoma stage IV
     Dosage: UNK
     Route: 065
  9. PEMBROLIZUMAB [Concomitant]
     Active Substance: PEMBROLIZUMAB
     Indication: Lung adenocarcinoma stage IV
     Dosage: UNK
     Route: 065

REACTIONS (5)
  - Lung adenocarcinoma recurrent [Fatal]
  - Renal impairment [Recovered/Resolved]
  - Therapy partial responder [Unknown]
  - Drug ineffective for unapproved indication [Unknown]
  - Off label use [Unknown]

NARRATIVE: CASE EVENT DATE: 20220101
